FAERS Safety Report 9249605 (Version 1)
Quarter: 2013Q2

REPORT INFORMATION
  Report Type: Spontaneous
  Country: US (occurrence: US)
  Receive Date: 20130423
  Receipt Date: 20130423
  Transmission Date: 20140414
  Serious: No
  Sender: FDA-Public Use
  Company Number: US-BRISTOL-MYERS SQUIBB COMPANY-17400318

PATIENT
  Age: 60 Year
  Sex: Female
  Weight: 92.06 kg

DRUGS (1)
  1. YERVOY [Suspect]
     Indication: MALIGNANT MELANOMA
     Dosage: RECENT DOSE 14FEB2013
     Dates: start: 20130105

REACTIONS (4)
  - Tinnitus [Unknown]
  - Diarrhoea [Recovered/Resolved]
  - Rash [Unknown]
  - Aphthous stomatitis [Unknown]
